FAERS Safety Report 11082426 (Version 1)
Quarter: 2015Q2

REPORT INFORMATION
  Report Type: Report from Study
  Country: NL (occurrence: NL)
  Receive Date: 20150501
  Receipt Date: 20150501
  Transmission Date: 20150821
  Serious: Yes (Hospitalization)
  Sender: FDA-Public Use
  Company Number: PHHY2015NL048231

PATIENT
  Sex: Female

DRUGS (1)
  1. SANDOSTATIN LAR DEPOT [Suspect]
     Active Substance: OCTREOTIDE ACETATE
     Indication: DUMPING SYNDROME
     Dosage: 20 MG/2 ML, EVERY 4 WEEKS
     Route: 065

REACTIONS (2)
  - Dehydration [Unknown]
  - Product use issue [Unknown]
